FAERS Safety Report 19809443 (Version 1)
Quarter: 2021Q3

REPORT INFORMATION
  Report Type: Spontaneous
  Country: US (occurrence: US)
  Receive Date: 20210908
  Receipt Date: 20210908
  Transmission Date: 20211014
  Serious: No
  Sender: FDA-Public Use
  Company Number: US-PFIZER INC-2021170203

PATIENT
  Age: 66 Year
  Sex: Female
  Weight: 83.27 kg

DRUGS (7)
  1. SOMAVERT [Suspect]
     Active Substance: PEGVISOMANT
     Indication: ACROMEGALY
     Dosage: 20 MG, CYCLIC (FOUR DAYS PER WEEK)
     Route: 058
     Dates: start: 201803
  2. VITAMIN C [Concomitant]
     Active Substance: ASCORBIC ACID
  3. GINKGO BILOBA [Concomitant]
     Active Substance: GINKGO
     Dosage: 120 MG
  4. MULTIVITAMIN IRON [Concomitant]
  5. ZYRTEC?D [Concomitant]
     Active Substance: CETIRIZINE HYDROCHLORIDE\PSEUDOEPHEDRINE HYDROCHLORIDE
  6. PRILOSEC [Concomitant]
     Active Substance: OMEPRAZOLE MAGNESIUM
     Dosage: 10 MG
  7. VITAMIN D [COLECALCIFEROL] [Concomitant]
     Active Substance: CHOLECALCIFEROL

REACTIONS (1)
  - Peripheral swelling [Unknown]
